FAERS Safety Report 9964360 (Version 4)
Quarter: 2014Q2

REPORT INFORMATION
  Report Type: Spontaneous
  Country: US (occurrence: US)
  Receive Date: 20140305
  Receipt Date: 20140425
  Transmission Date: 20141212
  Serious: Yes (Hospitalization, Other)
  Sender: FDA-Public Use
  Company Number: US-PFIZER INC-2014061912

PATIENT
  Age: 47 Year
  Sex: Female

DRUGS (3)
  1. LYRICA [Suspect]
     Indication: FIBROMYALGIA
     Dosage: 150 MG, 3X/DAY
     Route: 048
  2. EFFEXOR XR [Suspect]
     Indication: MAJOR DEPRESSION
     Dosage: 37.5 MG, 3X/DAY
  3. EFFEXOR XR [Suspect]
     Indication: ANXIETY

REACTIONS (5)
  - Fall [Unknown]
  - Skull fracture [Unknown]
  - Concussion [Unknown]
  - Weight decreased [Unknown]
  - Contusion [Unknown]
